FAERS Safety Report 20791187 (Version 4)
Quarter: 2022Q2

REPORT INFORMATION
  Report Type: Report from Study
  Country: MX (occurrence: MX)
  Receive Date: 20220505
  Receipt Date: 20220630
  Transmission Date: 20220721
  Serious: Yes (Hospitalization, Disabling, Other)
  Sender: FDA-Public Use
  Company Number: MX-002147023-NVSC2021MX236634

PATIENT
  Age: 37 Year
  Sex: Female
  Weight: 72 kg

DRUGS (12)
  1. INTERFERON BETA-1B [Suspect]
     Active Substance: INTERFERON BETA-1B
     Indication: Product used for unknown indication
     Dosage: UNK
     Route: 065
  2. GILENYA [Suspect]
     Active Substance: FINGOLIMOD HYDROCHLORIDE
     Indication: Multiple sclerosis
     Dosage: 1 DF, QD
     Route: 048
     Dates: start: 202008, end: 20211027
  3. GILENYA [Suspect]
     Active Substance: FINGOLIMOD HYDROCHLORIDE
     Indication: Multiple sclerosis
     Dosage: 1 DF, QD
     Route: 048
     Dates: start: 202108
  4. GILENYA [Suspect]
     Active Substance: FINGOLIMOD HYDROCHLORIDE
     Indication: Multiple sclerosis
     Dosage: 1 DF QD
     Route: 048
     Dates: start: 20211012
  5. GILENYA [Suspect]
     Active Substance: FINGOLIMOD HYDROCHLORIDE
     Indication: Multiple sclerosis
     Dosage: 1 DF QD
     Route: 048
     Dates: start: 20211116
  6. GILENYA [Suspect]
     Active Substance: FINGOLIMOD HYDROCHLORIDE
     Indication: Multiple sclerosis
     Dosage: 1 DF QD
     Dates: start: 20211116
  7. GILENYA [Suspect]
     Active Substance: FINGOLIMOD HYDROCHLORIDE
     Indication: Multiple sclerosis
     Dosage: 1 DF QD
     Dates: start: 20211116
  8. GILENYA [Suspect]
     Active Substance: FINGOLIMOD HYDROCHLORIDE
     Indication: Multiple sclerosis
     Dosage: 0.5 MG, QD
     Route: 048
     Dates: start: 202205
  9. COMPLEX B [VITAMIN B COMPLEX] [Concomitant]
     Dosage: UNK
  10. VITAMIN K [Concomitant]
     Active Substance: PHYTONADIONE
     Dosage: UNK
  11. ERGOCALCIFEROL [Concomitant]
     Active Substance: ERGOCALCIFEROL
     Dosage: UNK
  12. ESCITALOPRAM [Concomitant]
     Active Substance: ESCITALOPRAM OXALATE
     Dosage: UNK

REACTIONS (42)
  - Back pain [Recovering/Resolving]
  - Spinal pain [Recovering/Resolving]
  - Feeling abnormal [Recovering/Resolving]
  - Urinary tract infection [Recovered/Resolved]
  - Pain [Recovered/Resolved]
  - Dizziness [Recovered/Resolved]
  - Oral herpes [Recovering/Resolving]
  - Spinal cord injury [None]
  - Multiple sclerosis [None]
  - General physical health deterioration [None]
  - Somnolence [None]
  - Discomfort [Not Recovered/Not Resolved]
  - Hypertension [Not Recovered/Not Resolved]
  - Off label use [None]
  - Headache [Not Recovered/Not Resolved]
  - Malaise [Not Recovered/Not Resolved]
  - Urinary tract infection [Recovered/Resolved]
  - Insomnia [Not Recovered/Not Resolved]
  - Depression [Not Recovered/Not Resolved]
  - Eating disorder [Not Recovered/Not Resolved]
  - Pain [Not Recovered/Not Resolved]
  - Nausea [Not Recovered/Not Resolved]
  - Fatigue [Not Recovered/Not Resolved]
  - Aphthous ulcer [Not Recovered/Not Resolved]
  - Balance disorder [Not Recovered/Not Resolved]
  - Dizziness [Not Recovered/Not Resolved]
  - Peripheral swelling [Recovered/Resolved]
  - Haematoma [Not Recovered/Not Resolved]
  - Relapsing multiple sclerosis [None]
  - Asthenia [None]
  - Memory impairment [None]
  - Muscle rigidity [Recovering/Resolving]
  - Hypoaesthesia [None]
  - Fall [None]
  - Pain in extremity [Not Recovered/Not Resolved]
  - Renal pain [Not Recovered/Not Resolved]
  - Vision blurred [Not Recovered/Not Resolved]
  - Infection [None]
  - Candida infection [Not Recovered/Not Resolved]
  - Immunosuppression [None]
  - Liver injury [Not Recovered/Not Resolved]
  - Nosocomial infection [Not Recovered/Not Resolved]

NARRATIVE: CASE EVENT DATE: 20210301
